FAERS Safety Report 6400046-8 (Version None)
Quarter: 2009Q4

REPORT INFORMATION
  Report Type: 
  Country: None (occurrence: None)
  Receive Date: 20091014
  Receipt Date: 20091006
  Transmission Date: 20100525
  Serious: Yes (Death, Hospitalization)
  Sender: FDA-Public Use
  Company Number: A0793304A

PATIENT
  Age: 63 Year
  Sex: Male

DRUGS (1)
  1. AVANDIA [Suspect]
     Route: 048
     Dates: start: 20000101, end: 20060601

REACTIONS (11)
  - AORTIC VALVE INCOMPETENCE [None]
  - ATRIAL FIBRILLATION [None]
  - CARDIAC FAILURE CONGESTIVE [None]
  - MITRAL VALVE INCOMPETENCE [None]
  - MYOCARDIAL INFARCTION [None]
  - MYOCARDIAL ISCHAEMIA [None]
  - PNEUMONIA [None]
  - RESPIRATORY FAILURE [None]
  - SEPSIS [None]
  - SHOCK [None]
  - VENTRICULAR TACHYCARDIA [None]
